FAERS Safety Report 18881218 (Version 2)
Quarter: 2021Q1

REPORT INFORMATION
  Report Type: Other
  Country: HU (occurrence: HU)
  Receive Date: 20210211
  Receipt Date: 20210305
  Transmission Date: 20210420
  Serious: Yes (Other)
  Sender: FDA-Public Use
  Company Number: HU-EMD SERONO-E2B_90051872

PATIENT
  Age: 60 Year
  Sex: Male
  Weight: 86 kg

DRUGS (7)
  1. ATORVASTATIN [Suspect]
     Active Substance: ATORVASTATIN
  2. PERINDOPRIL [Suspect]
     Active Substance: PERINDOPRIL
  3. ATORVASTATIN [Suspect]
     Active Substance: ATORVASTATIN
     Indication: PRODUCT USED FOR UNKNOWN INDICATION
     Dosage: QHS (EVERY BEDTIME)
     Route: 065
  4. PERINDOPRIL [Suspect]
     Active Substance: PERINDOPRIL
     Indication: HYPERTENSION
     Route: 065
  5. BISOPROLOL [Suspect]
     Active Substance: BISOPROLOL
     Indication: PRODUCT USED FOR UNKNOWN INDICATION
  6. ACETYLSALICYLIC ACID [Suspect]
     Active Substance: ASPIRIN
     Indication: PRODUCT USED FOR UNKNOWN INDICATION
     Route: 065
  7. METFORMIN [Suspect]
     Active Substance: METFORMIN HYDROCHLORIDE
     Indication: TYPE 2 DIABETES MELLITUS
     Dosage: AT NIGHT
     Route: 065

REACTIONS (11)
  - Electrocardiogram ST segment depression [Recovered/Resolved]
  - Ventricular hypokinesia [Unknown]
  - Diabetes mellitus [Unknown]
  - Muscle spasms [Unknown]
  - Acute myocardial infarction [Unknown]
  - Left ventricular hypertrophy [Unknown]
  - Central obesity [Unknown]
  - Diastolic dysfunction [Unknown]
  - Blood triglycerides increased [Unknown]
  - Hypertension [Recovering/Resolving]
  - Arteriosclerosis [Unknown]

NARRATIVE: CASE EVENT DATE: 2005
